FAERS Safety Report 8113135-7 (Version None)
Quarter: 2012Q1

REPORT INFORMATION
  Report Type: 
  Country: None (occurrence: None)
  Receive Date: 20120203
  Receipt Date: 20120125
  Transmission Date: 20120608
  Serious: Yes (Hospitalization)
  Sender: FDA-Public Use
  Company Number: US-AMGEN-USASP2012005598

PATIENT
  Age: 56 Year
  Sex: Male

DRUGS (3)
  1. CALCIUM [Concomitant]
     Dosage: UNK
  2. XGEVA [Suspect]
     Indication: METASTASES TO BONE
     Dosage: 120 MG, Q4WK
     Dates: start: 20110801
  3. VITAMIN D [Concomitant]
     Dosage: UNK

REACTIONS (2)
  - HYPOCALCAEMIA [None]
  - ARRHYTHMIA [None]
